FAERS Safety Report 8191895-7 (Version None)
Quarter: 2012Q1

REPORT INFORMATION
  Report Type: 
  Country: None (occurrence: None)
  Receive Date: 20120307
  Receipt Date: 20120223
  Transmission Date: 20120608
  Serious: Yes (Hospitalization)
  Sender: FDA-Public Use
  Company Number: PHHY2012DE015593

PATIENT
  Sex: Female
  Weight: 60.7 kg

DRUGS (8)
  1. FENTANYL-100 [Concomitant]
     Dosage: 25 UG, EVERY THIRD DAY
  2. PENTASA [Concomitant]
     Dosage: 1000 MG, UNK
  3. FASLODEX [Concomitant]
     Dosage: 500 MG, QMO
     Dates: start: 20110927
  4. FEMARA [Suspect]
     Dosage: 2.5 MG, UNK
     Route: 048
     Dates: start: 20101110
  5. SUMATRIPTAN [Concomitant]
     Dosage: UNK UKN, PRN
     Route: 048
  6. OMEPRAZOLE [Concomitant]
     Dosage: 20 MG, 90 MG PER QUARTER
     Route: 048
  7. ZOMETA [Suspect]
     Indication: BONE DISORDER
     Dosage: 4 MG, EVERY 4 WEEK
     Route: 042
     Dates: start: 20101119
  8. LYRICA [Concomitant]
     Dosage: 150 MG, UNK
     Route: 048

REACTIONS (1)
  - LEUKAEMIA [None]
